FAERS Safety Report 18599481 (Version 1)
Quarter: 2020Q4

REPORT INFORMATION
  Report Type: Report from Study
  Country: CA (occurrence: CA)
  Receive Date: 20201210
  Receipt Date: 20201210
  Transmission Date: 20210114
  Serious: Yes (Other)
  Sender: FDA-Public Use
  Company Number: CA-AMGEN-CANSL2020116684

PATIENT
  Age: 52 Year
  Sex: Female

DRUGS (2)
  1. DIHYDROMORPHINE [Concomitant]
     Active Substance: DIHYDROMORPHINE
     Dosage: UNK
  2. PROLIA [Suspect]
     Active Substance: DENOSUMAB
     Indication: OSTEOPOROSIS POSTMENOPAUSAL
     Dosage: 60 MILLIGRAM PER MILLILITRE, Q6MO
     Route: 065
     Dates: start: 20200101

REACTIONS (4)
  - Unevaluable event [Unknown]
  - Pain [Recovering/Resolving]
  - Fall [Unknown]
  - Bone pain [Recovering/Resolving]

NARRATIVE: CASE EVENT DATE: 202007
